FAERS Safety Report 5261873-6 (Version None)
Quarter: 2007Q1

REPORT INFORMATION
  Report Type: 
  Country: None (occurrence: None)
  Receive Date: 20070310
  Receipt Date: 20070228
  Transmission Date: 20070707
  Serious: Yes (Other)
  Sender: FDA-Public Use
  Company Number: 2006UW24529

PATIENT
  Sex: Female
  Weight: 81.8 kg

DRUGS (4)
  1. SEROQUEL [Suspect]
     Indication: SCHIZOPHRENIA
     Route: 048
     Dates: start: 20031002, end: 20050313
  2. GEODON [Concomitant]
     Dates: start: 20011128, end: 20060201
  3. SYMBYAX [Concomitant]
     Dates: start: 19970624, end: 20030625
  4. DEPAKOTE [Concomitant]
     Dates: start: 20020224

REACTIONS (5)
  - CEREBROVASCULAR ACCIDENT [None]
  - DIABETES MELLITUS [None]
  - LOSS OF CONSCIOUSNESS [None]
  - PNEUMONIA [None]
  - RENAL FAILURE ACUTE [None]
